FAERS Safety Report 25300586 (Version 2)
Quarter: 2025Q2

REPORT INFORMATION
  Report Type: Report from Study
  Country: RU (occurrence: RU)
  Receive Date: 20250512
  Receipt Date: 20250516
  Transmission Date: 20250717
  Serious: Yes (Hospitalization)
  Sender: EISAI
  Company Number: RU-Eisai-EC-2025-188777

PATIENT
  Age: 65 Year
  Sex: Male

DRUGS (9)
  1. LENVIMA [Suspect]
     Active Substance: LENVATINIB
     Indication: Renal cell carcinoma
     Dates: start: 20230630, end: 202309
  2. LENVIMA [Suspect]
     Active Substance: LENVATINIB
     Dates: start: 2023
  3. PEMBROLIZUMAB [Concomitant]
     Active Substance: PEMBROLIZUMAB
     Indication: Renal cell carcinoma
     Dates: start: 20230630
  4. ZOLEDRONIC ACID [Concomitant]
     Active Substance: ZOLEDRONIC ACID
  5. EDARBI CLO [Concomitant]
     Indication: Hypertension
  6. AMIODARONE [Concomitant]
     Active Substance: AMIODARONE
     Indication: Atrial fibrillation
     Dates: start: 202309, end: 202309
  7. AMIODARONE [Concomitant]
     Active Substance: AMIODARONE
  8. METOPROLOL [Concomitant]
     Active Substance: METOPROLOL
     Indication: Electrocardiogram QT prolonged
  9. RIVAROXABAN [Concomitant]
     Active Substance: RIVAROXABAN
     Indication: Thrombosis prophylaxis

REACTIONS (3)
  - Atrial fibrillation [Recovered/Resolved]
  - Electrocardiogram QT prolonged [Unknown]
  - Hypertension [Unknown]

NARRATIVE: CASE EVENT DATE: 20230901
